FAERS Safety Report 7520454-1 (Version None)
Quarter: 2011Q2

REPORT INFORMATION
  Report Type: 
  Country: None (occurrence: None)
  Receive Date: 20110602
  Receipt Date: 20110524
  Transmission Date: 20111010
  Serious: Yes (Hospitalization, Other)
  Sender: FDA-Public Use
  Company Number: DE-AMGEN-DEUSP2011023516

PATIENT
  Age: 51 Year
  Sex: Male

DRUGS (8)
  1. LEVOTHYROXINE SODIUM [Concomitant]
  2. JODID [Concomitant]
  3. BICANORM [Concomitant]
  4. REVLIMID [Concomitant]
  5. ARANESP [Concomitant]
     Indication: PRODUCT USED FOR UNKNOWN INDICATION
     Dosage: UNK
     Route: 058
  6. PROLIA [Suspect]
     Indication: PRODUCT USED FOR UNKNOWN INDICATION
     Dosage: 120 MG, UNK
     Route: 042
     Dates: start: 20110330, end: 20110330
  7. TAMSULOSIN HCL [Concomitant]
  8. ACIC                               /00587301/ [Concomitant]

REACTIONS (8)
  - RENAL FAILURE ACUTE [None]
  - DERMATITIS ACNEIFORM [None]
  - NEPHROLITHIASIS [None]
  - GASTROENTERITIS [None]
  - HEPATOSPLENOMEGALY [None]
  - TETANY [None]
  - CARDIOMEGALY [None]
  - HYPONATRAEMIA [None]
